FAERS Safety Report 25811055 (Version 2)
Quarter: 2025Q3

REPORT INFORMATION
  Report Type: Spontaneous
  Country: US (occurrence: US)
  Receive Date: 20250917
  Receipt Date: 20250924
  Transmission Date: 20251021
  Serious: Yes (Other)
  Sender: ARS PHARMACEUTICALS OPERATIONS, INC.
  Company Number: US-ARS PHARMACEUTICALS OPERATIONS, INC.-2025ARP00128

PATIENT
  Age: 36 Year
  Sex: Female

DRUGS (1)
  1. NEFFY [Suspect]
     Active Substance: EPINEPHRINE
     Indication: Hypersensitivity
     Route: 045
     Dates: start: 202411

REACTIONS (35)
  - Presyncope [Unknown]
  - Mobility decreased [Unknown]
  - Tremor [Unknown]
  - Headache [Unknown]
  - Sympathomimetic effect [Unknown]
  - Feeling abnormal [Unknown]
  - Ocular discomfort [Unknown]
  - Head discomfort [Unknown]
  - Illness [Unknown]
  - Impaired driving ability [Unknown]
  - Brain fog [Unknown]
  - Visual impairment [Unknown]
  - Burning sensation [Unknown]
  - Muscle spasms [Unknown]
  - Vertigo [Unknown]
  - Myalgia [Unknown]
  - Pain [Unknown]
  - Seizure like phenomena [Unknown]
  - Musculoskeletal stiffness [Unknown]
  - Electric shock sensation [Unknown]
  - Hypoaesthesia [Unknown]
  - Tinnitus [Unknown]
  - Arthralgia [Unknown]
  - Gastrointestinal disorder [Unknown]
  - Nervous system disorder [Unknown]
  - Anxiety [Not Recovered/Not Resolved]
  - Paraesthesia [Unknown]
  - Fatigue [Unknown]
  - Arrhythmia [Unknown]
  - Nausea [Unknown]
  - Abdominal pain upper [Unknown]
  - Dizziness [Unknown]
  - Procedural nausea [Unknown]
  - Asthenia [Unknown]
  - Unevaluable event [Unknown]

NARRATIVE: CASE EVENT DATE: 20240101
